FAERS Safety Report 24590092 (Version 1)
Quarter: 2024Q4

REPORT INFORMATION
  Report Type: Spontaneous
  Country: US (occurrence: None)
  Receive Date: 20241107
  Receipt Date: 20241107
  Transmission Date: 20250115
  Serious: No
  Sender: Public
  Company Number: None

PATIENT
  Age: 21 Year
  Sex: Male
  Weight: 69.3 kg

DRUGS (1)
  1. ROHTO ALL-IN-ONE [Suspect]
     Active Substance: HYPROMELLOSES\TETRAHYDROZOLINE HYDROCHLORIDE\ZINC SULFATE
     Indication: Ocular hyperaemia
     Dosage: FREQUENCY : 4 TIMES A DAY;?
     Route: 047
     Dates: start: 20241106, end: 20241107

REACTIONS (1)
  - Eye irritation [None]

NARRATIVE: CASE EVENT DATE: 20241106
